FAERS Safety Report 8529356-5 (Version None)
Quarter: 2012Q2

REPORT INFORMATION
  Report Type: 
  Country: None (occurrence: None)
  Receive Date: 20120406
  Receipt Date: 20110531
  Transmission Date: 20120825
  Serious: Yes (Hospitalization, Other)
  Sender: FDA-Public Use
  Company Number: US-2011-10337

PATIENT
  Age: 9 Year
  Sex: Male

DRUGS (6)
  1. MYCOPHENOLATE MOFETIL [Concomitant]
  2. BUSULFEX [Suspect]
     Indication: BONE MARROW TRANSPLANT
     Dosage: 16 MG/KG, INTRAVENOUS
     Route: 042
  3. CYCLOPHOSPHAMIDE [Suspect]
     Dosage: 200 MG/KG
  4. IMMUNOGLOBULIN I.V (IMMUNOGLOBULIN) [Concomitant]
  5. DEOXYCHOLIC ACID (DEOXYCHOLIC ACID) [Concomitant]
  6. TACROLIMUS [Concomitant]

REACTIONS (4)
  - PLEURAL EFFUSION [None]
  - CAPILLARY LEAK SYNDROME [None]
  - CYTOMEGALOVIRUS INFECTION [None]
  - HYPOTHYROIDISM [None]
